FAERS Safety Report 7452592-6 (Version None)
Quarter: 2011Q2

REPORT INFORMATION
  Report Type: 
  Country: None (occurrence: None)
  Receive Date: 20110502
  Receipt Date: 20100920
  Transmission Date: 20111010
  Serious: No
  Sender: FDA-Public Use
  Company Number: US-ASTRAZENECA-2010SE44228

PATIENT
  Age: 63 Year
  Sex: Male

DRUGS (7)
  1. NEXIUM [Suspect]
     Indication: GASTROINTESTINAL DISORDER
     Route: 048
     Dates: start: 20010101, end: 20060101
  2. NEXIUM [Suspect]
     Route: 048
     Dates: start: 20080101
  3. ATENOLOL [Concomitant]
     Indication: CARDIAC DISORDER
  4. VIT D [Concomitant]
  5. NEXIUM [Suspect]
     Route: 048
     Dates: start: 20080101
  6. NEXIUM [Suspect]
     Indication: GASTROOESOPHAGEAL REFLUX DISEASE
     Route: 048
     Dates: start: 20010101, end: 20060101
  7. CALCIUM [Concomitant]

REACTIONS (5)
  - INTERVERTEBRAL DISC DISORDER [None]
  - VITAMIN D DECREASED [None]
  - DYSPEPSIA [None]
  - BLOOD CALCIUM DECREASED [None]
  - BACK DISORDER [None]
